FAERS Safety Report 24640983 (Version 3)
Quarter: 2024Q4

REPORT INFORMATION
  Report Type: Spontaneous
  Country: ES (occurrence: ES)
  Receive Date: 20241120
  Receipt Date: 20241205
  Transmission Date: 20250115
  Serious: Yes (Death, Hospitalization, Other)
  Sender: NOVARTIS
  Company Number: ES-002147023-NVSC2024ES222441

PATIENT
  Age: 3 Month
  Sex: Male

DRUGS (1)
  1. ZOLGENSMA [Suspect]
     Active Substance: ONASEMNOGENE ABEPARVOVEC-XIOI
     Indication: Product used for unknown indication
     Dosage: UNK, ONCE/SINGLE
     Route: 042
     Dates: start: 202410, end: 202410

REACTIONS (3)
  - Death [Fatal]
  - Rhinovirus infection [Not Recovered/Not Resolved]
  - Drug ineffective [Not Recovered/Not Resolved]

NARRATIVE: CASE EVENT DATE: 20241119
